FAERS Safety Report 9401869 (Version 1)
Quarter: 2013Q3

REPORT INFORMATION
  Report Type: Spontaneous
  Country: US (occurrence: US)
  Receive Date: 20130716
  Receipt Date: 20130716
  Transmission Date: 20140515
  Serious: Yes (Hospitalization, Other)
  Sender: FDA-Public Use
  Company Number: US-JNJFOC-NSADSS2001034160

PATIENT
  Age: 73 Year
  Sex: Female

DRUGS (6)
  1. REMICADE [Suspect]
     Indication: RHEUMATOID ARTHRITIS
     Route: 041
     Dates: start: 20010525, end: 20010525
  2. REMICADE [Suspect]
     Indication: RHEUMATOID ARTHRITIS
     Route: 041
  3. REMICADE [Suspect]
     Indication: RHEUMATOID ARTHRITIS
     Route: 041
     Dates: start: 20010213, end: 20010213
  4. REMICADE [Suspect]
     Indication: RHEUMATOID ARTHRITIS
     Route: 041
     Dates: start: 200010, end: 200010
  5. METHOTREXATE [Concomitant]
     Indication: RHEUMATOID LUNG
     Dates: start: 20010213
  6. PREDNISONE [Concomitant]

REACTIONS (3)
  - Mycobacterium tuberculosis complex test positive [Recovered/Resolved]
  - Pleural effusion [Recovered/Resolved]
  - Immune reconstitution inflammatory syndrome [Unknown]
